FAERS Safety Report 5119424-2 (Version None)
Quarter: 2006Q3

REPORT INFORMATION
  Report Type: 
  Country: None (occurrence: None)
  Receive Date: 20060929
  Receipt Date: 20060915
  Transmission Date: 20061208
  Serious: Yes (Other)
  Sender: FDA-Public Use
  Company Number: 2006SP000001

PATIENT
  Age: 60 Year
  Sex: Female
  Weight: 62.5964 kg

DRUGS (14)
  1. NASONEX [Suspect]
     Indication: NASOPHARYNGEAL DISORDER
     Dosage: SEE IMAGE
     Route: 045
     Dates: start: 20050401, end: 20051215
  2. NASONEX [Suspect]
     Indication: SPUTUM RETENTION
     Dosage: SEE IMAGE
     Route: 045
     Dates: start: 20050401, end: 20051215
  3. NASONEX [Suspect]
     Indication: NASOPHARYNGEAL DISORDER
     Dosage: SEE IMAGE
     Route: 045
     Dates: start: 20050401, end: 20051215
  4. NASONEX [Suspect]
     Indication: SPUTUM RETENTION
     Dosage: SEE IMAGE
     Route: 045
     Dates: start: 20050401, end: 20051215
  5. ADVIL [Concomitant]
  6. MULTI-VITAMIN [Concomitant]
  7. CALCIUM GLUCONATE [Concomitant]
  8. MAGNESIUM [Concomitant]
  9. VITAMIN B COMPLEX CAP [Concomitant]
  10. COENZYME Q10 [Concomitant]
  11. GRAPE SEED EXTRACT [Concomitant]
  12. MILK THISTLE [Concomitant]
  13. L-CARNITINE [Concomitant]
  14. VITAMIN B-12 [Concomitant]

REACTIONS (5)
  - INTRAOCULAR PRESSURE INCREASED [None]
  - MIDDLE INSOMNIA [None]
  - MOVEMENT DISORDER [None]
  - PAIN IN EXTREMITY [None]
  - TRIGGER FINGER [None]
